FAERS Safety Report 8765457 (Version 1)
Quarter: 2012Q4

REPORT INFORMATION
  Report Type: 
  Country: US (occurrence: US)
  Receive Date: 20120831
  Receipt Date: 20120831
  Transmission Date: 20130627
  Serious: Yes (Other)
  Sender: FDA-Public Use
  Company Number: US-PFIZER INC-2012212612

PATIENT
  Age: 58 Year
  Sex: Female
  Weight: 78.01 kg

DRUGS (5)
  1. LYRICA [Suspect]
     Indication: PAIN
     Dosage: 100 mg, 3x/day
     Route: 048
     Dates: start: 201207, end: 2012
  2. LYRICA [Suspect]
     Dosage: 75 mg, 3x/day
     Route: 048
     Dates: start: 2012
  3. CORTISONE [Suspect]
     Indication: PRURITUS
     Dosage: UNK
     Dates: start: 201208
  4. WELLBUTRIN [Concomitant]
     Indication: DEPRESSION
     Dosage: 300 mg, daily
  5. AMBIEN [Concomitant]
     Indication: SLEEP DISORDER
     Dosage: 10 mg, daily

REACTIONS (6)
  - Pulmonary sarcoidosis [Unknown]
  - Pruritus [Not Recovered/Not Resolved]
  - Vulvovaginal pruritus [Not Recovered/Not Resolved]
  - Oedema peripheral [Not Recovered/Not Resolved]
  - Erythema [Not Recovered/Not Resolved]
  - Drug ineffective [Unknown]
